FAERS Safety Report 23394144 (Version 1)
Quarter: 2024Q1

REPORT INFORMATION
  Report Type: Spontaneous
  Country: FR (occurrence: FR)
  Receive Date: 20240111
  Receipt Date: 20240111
  Transmission Date: 20240409
  Serious: Yes (Other)
  Sender: FDA-Public Use
  Company Number: None

PATIENT
  Age: 54 Year
  Sex: Male
  Weight: 117 kg

DRUGS (4)
  1. KEYTRUDA [Suspect]
     Active Substance: PEMBROLIZUMAB
     Indication: Renal cancer metastatic
     Dosage: 200 MILLIGRAM, EVERY 21 DAYS, 18 CURES IN TOTAL
     Route: 042
     Dates: start: 20220228, end: 20230316
  2. INLYTA [Suspect]
     Active Substance: AXITINIB
     Indication: Renal cancer metastatic
     Dosage: 10 MILLIGRAM, QD, IN 2 TAKES
     Route: 048
     Dates: start: 20220228, end: 20220322
  3. INLYTA [Suspect]
     Active Substance: AXITINIB
     Dosage: 8 MILLIGRAM, QD, IN 2 TAKES
     Route: 048
     Dates: start: 20220323, end: 20220616
  4. INLYTA [Suspect]
     Active Substance: AXITINIB
     Dosage: 6 MILLIGRAM, QD, IN 2 TAKES
     Route: 048
     Dates: start: 20220627, end: 20230316

REACTIONS (1)
  - Eczema [Recovering/Resolving]

NARRATIVE: CASE EVENT DATE: 20220505
